FAERS Safety Report 25771456 (Version 1)
Quarter: 2025Q3

REPORT INFORMATION
  Report Type: Spontaneous
  Country: US (occurrence: US)
  Receive Date: 20250908
  Receipt Date: 20250908
  Transmission Date: 20251021
  Serious: No
  Sender: DOMPE FARMACEUTICI
  Company Number: US-FARMAPROD-202504-1274

PATIENT
  Age: 75 Year
  Sex: Female

DRUGS (15)
  1. OXERVATE [Suspect]
     Active Substance: CENEGERMIN-BKBJ
     Indication: Neurotrophic keratopathy
     Route: 047
     Dates: start: 20250407, end: 20250604
  2. OXERVATE [Suspect]
     Active Substance: CENEGERMIN-BKBJ
  3. CHONDROITIN SULFATE (BOVINE)\GLUCOSAMINE SULFATE [Concomitant]
     Active Substance: CHONDROITIN SULFATE (BOVINE)\GLUCOSAMINE SULFATE
  4. CALCIUM [Concomitant]
     Active Substance: CALCIUM
  5. MULTI-VITAMIN DAILY [Concomitant]
  6. PROBIOTIC-10 [Concomitant]
  7. VITAMIN D2 [Concomitant]
     Active Substance: ERGOCALCIFEROL
  8. VITAMIN C [Concomitant]
     Active Substance: ASCORBIC ACID
  9. LUMIGAN [Concomitant]
     Active Substance: BIMATOPROST
  10. TIMOLOL [Concomitant]
     Active Substance: TIMOLOL
  11. MOXIFLOXACIN [Concomitant]
     Active Substance: MOXIFLOXACIN
  12. NEXIUM [Concomitant]
     Active Substance: ESOMEPRAZOLE MAGNESIUM
  13. ASPIRIN [Concomitant]
     Active Substance: ASPIRIN
  14. SIMVASTATIN [Concomitant]
     Active Substance: SIMVASTATIN
  15. LISINOPRIL [Concomitant]
     Active Substance: LISINOPRIL

REACTIONS (3)
  - Inappropriate schedule of product administration [Unknown]
  - Eyelid pain [Unknown]
  - Eye pain [Unknown]

NARRATIVE: CASE EVENT DATE: 20250414
